FAERS Safety Report 5201105-8 (Version None)
Quarter: 2007Q1

REPORT INFORMATION
  Report Type: 
  Country: None (occurrence: None)
  Receive Date: 20070103
  Receipt Date: 20061204
  Transmission Date: 20070707
  Serious: Yes (Hospitalization)
  Sender: FDA-Public Use
  Company Number: FSC_0011_2006

PATIENT
  Age: 17 Year
  Sex: Female
  Weight: 57 kg

DRUGS (3)
  1. ISOPTIN [Suspect]
     Dosage: 2400 MG ONCE PO
     Route: 048
     Dates: start: 20060529, end: 20060529
  2. ALCOHOLIC FOOD [Suspect]
     Dosage: DF ONCE PO
     Route: 048
  3. AXURA [Suspect]
     Dosage: 100 MG ONCE PO
     Route: 048
     Dates: start: 20060529, end: 20060529

REACTIONS (5)
  - ELECTROCARDIOGRAM CHANGE [None]
  - MENTAL IMPAIRMENT [None]
  - MULTIPLE DRUG OVERDOSE INTENTIONAL [None]
  - SUICIDE ATTEMPT [None]
  - VOMITING [None]
